FAERS Safety Report 23149422 (Version 1)
Quarter: 2023Q4

REPORT INFORMATION
  Report Type: Spontaneous
  Country: US (occurrence: US)
  Receive Date: 20231106
  Receipt Date: 20231106
  Transmission Date: 20240110
  Serious: Yes (Hospitalization, Other)
  Sender: FDA-Public Use
  Company Number: US-SUN PHARMACEUTICAL INDUSTRIES LTD-2023R1-416440

PATIENT
  Age: 72 Year
  Sex: Female

DRUGS (5)
  1. HYDROCORTISONE [Suspect]
     Active Substance: HYDROCORTISONE
     Indication: Pityriasis rubra pilaris
     Dosage: UNK
     Route: 065
  2. ACITRETIN [Suspect]
     Active Substance: ACITRETIN
     Indication: Pityriasis rubra pilaris
     Dosage: 25 MILLIGRAM, DAILY
     Route: 065
  3. CLOBETASOL [Suspect]
     Active Substance: CLOBETASOL
     Indication: Pityriasis rubra pilaris
     Route: 065
  4. EMOLLIENTS [Suspect]
     Active Substance: EMOLLIENTS
     Indication: Pityriasis rubra pilaris
     Dosage: UNK
     Route: 065
  5. TRIAMCINOLONE [Suspect]
     Active Substance: TRIAMCINOLONE
     Indication: Pityriasis rubra pilaris
     Dosage: UNK
     Route: 065

REACTIONS (2)
  - Disease progression [Unknown]
  - Therapy non-responder [Unknown]
